FAERS Safety Report 15906974 (Version 1)
Quarter: 2019Q1

REPORT INFORMATION
  Report Type: Spontaneous
  Country: US (occurrence: US)
  Receive Date: 20190204
  Receipt Date: 20190204
  Transmission Date: 20190417
  Serious: No
  Sender: FDA-Public Use
  Company Number: US-PFIZER INC-2019049836

PATIENT
  Age: 22 Year
  Sex: Male

DRUGS (1)
  1. GENOTROPIN MQ [Suspect]
     Active Substance: SOMATROPIN
     Dosage: 1 MG, DAILY

REACTIONS (5)
  - Blood sodium decreased [Unknown]
  - Blood glucose decreased [Unknown]
  - Blood chloride decreased [Unknown]
  - Thyroxine free decreased [Unknown]
  - Insulin-like growth factor increased [Unknown]
